FAERS Safety Report 15647985 (Version 1)
Quarter: 2018Q4

REPORT INFORMATION
  Report Type: Spontaneous
  Country: US (occurrence: US)
  Receive Date: 20181122
  Receipt Date: 20181122
  Transmission Date: 20190205
  Serious: No
  Sender: FDA-Public Use
  Company Number: US-SA-2018SA317222

PATIENT
  Sex: Female

DRUGS (1)
  1. ACT GENERIC (SODIUM FLUORIDE) [Suspect]
     Active Substance: SODIUM FLUORIDE

REACTIONS (2)
  - Abdominal distension [Unknown]
  - Flatulence [Unknown]
